FAERS Safety Report 6195551-6 (Version None)
Quarter: 2009Q2

REPORT INFORMATION
  Report Type: 
  Country: None (occurrence: None)
  Receive Date: 20090519
  Receipt Date: 20090512
  Transmission Date: 20091009
  Serious: Yes (Other)
  Sender: FDA-Public Use
  Company Number: PHEH2009US03171

PATIENT
  Sex: Female

DRUGS (2)
  1. EXFORGE [Suspect]
     Dosage: 5/320 MG, UNK
     Dates: start: 20080101
  2. ALLOPURINOL [Concomitant]
     Dosage: UNK, UNK

REACTIONS (3)
  - BACK PAIN [None]
  - GAIT DISTURBANCE [None]
  - SURGERY [None]
